FAERS Safety Report 12250856 (Version 2)
Quarter: 2016Q2

REPORT INFORMATION
  Report Type: Spontaneous
  Country: US (occurrence: US)
  Receive Date: 20160409
  Receipt Date: 20160603
  Transmission Date: 20160815
  Serious: Yes (Other)
  Sender: FDA-Public Use
  Company Number: US-009507513-1603USA012087

PATIENT
  Sex: Male

DRUGS (1)
  1. KEYTRUDA [Suspect]
     Active Substance: PEMBROLIZUMAB
     Indication: OESOPHAGEAL CARCINOMA
     Dosage: COMPLETED TWO TREATMENTS

REACTIONS (4)
  - Rheumatoid arthritis [Unknown]
  - Product use issue [Unknown]
  - Dysphonia [Unknown]
  - Rash [Unknown]
